FAERS Safety Report 15665462 (Version 1)
Quarter: 2018Q4

REPORT INFORMATION
  Report Type: Spontaneous
  Country: GB (occurrence: GB)
  Receive Date: 20181128
  Receipt Date: 20181128
  Transmission Date: 20190205
  Serious: Yes (Other)
  Sender: FDA-Public Use
  Company Number: GB-SAOL THERAPEUTICS-2018SAO01084

PATIENT

DRUGS (2)
  1. HEPATITIS B VACCINE [Suspect]
     Active Substance: HEPATITIS B VIRUS VACCINE
     Indication: ANTIVIRAL PROPHYLAXIS
     Dosage: 4 DOSES
     Route: 065
  2. HEPATITIS B IMMUNE GLOBULIN [Suspect]
     Active Substance: HUMAN HEPATITIS B VIRUS IMMUNE GLOBULIN
     Indication: ANTIVIRAL PROPHYLAXIS
     Route: 065

REACTIONS (3)
  - Hepatitis B [Unknown]
  - Viral mutation identified [Unknown]
  - Drug ineffective [Unknown]
